FAERS Safety Report 13259526 (Version 4)
Quarter: 2017Q2

REPORT INFORMATION
  Report Type: Spontaneous
  Country: JP (occurrence: JP)
  Receive Date: 20170222
  Receipt Date: 20170418
  Transmission Date: 20170830
  Serious: Yes (Other)
  Sender: FDA-Public Use
  Company Number: PHJP2017JP005575

PATIENT
  Age: 55 Year
  Sex: Female
  Weight: 61.7 kg

DRUGS (3)
  1. EXFORGE [Suspect]
     Active Substance: AMLODIPINE BESYLATE\VALSARTAN
     Indication: HYPERTENSION
     Dosage: 1 DOSE FORMULAR (DF): AMLODIPINE 5 MG, VALSARTAN 80 MG, QD
     Route: 048
     Dates: start: 20110226, end: 20170206
  2. SUINY [Concomitant]
     Active Substance: ANAGLIPTIN
     Indication: PRODUCT USED FOR UNKNOWN INDICATION
     Dosage: 200 MG, UNK
     Route: 048
     Dates: start: 20170206
  3. LIVALO [Concomitant]
     Active Substance: PITAVASTATIN CALCIUM
     Indication: HYPERLIPIDAEMIA
     Dosage: 1 MG, QD
     Route: 048
     Dates: start: 20120312

REACTIONS (8)
  - Blister [Unknown]
  - Arthralgia [Recovered/Resolved]
  - Eczema [Unknown]
  - Rheumatoid arthritis [Recovering/Resolving]
  - Asthma [Recovered/Resolved]
  - Pemphigus [Recovering/Resolving]
  - Pyrexia [Unknown]
  - Asthma [Recovering/Resolving]

NARRATIVE: CASE EVENT DATE: 20130313
